FAERS Safety Report 7817145-6 (Version None)
Quarter: 2011Q4

REPORT INFORMATION
  Report Type: 
  Country: None (occurrence: None)
  Receive Date: 20111017
  Receipt Date: 20111017
  Transmission Date: 20120403
  Serious: Yes (Hospitalization)
  Sender: FDA-Public Use
  Company Number: None

PATIENT
  Age: 78 Year
  Sex: Female
  Weight: 67.131 kg

DRUGS (1)
  1. SULFAMETHOXAZOLE AND TRIMETHOPRIM [Suspect]
     Indication: URINARY TRACT INFECTION
     Dosage: DS
     Route: 048
     Dates: start: 20110923, end: 20110926

REACTIONS (3)
  - CONJUNCTIVAL HYPERAEMIA [None]
  - PRODUCT QUALITY ISSUE [None]
  - STOMATITIS [None]
